FAERS Safety Report 25931948 (Version 1)
Quarter: 2025Q4

REPORT INFORMATION
  Report Type: Spontaneous
  Country: CA (occurrence: CA)
  Receive Date: 20251016
  Receipt Date: 20251016
  Transmission Date: 20260118
  Serious: Yes (Hospitalization, Disabling)
  Sender: PFIZER
  Company Number: CA-PFIZER INC-202500204918

PATIENT
  Age: 74 Year
  Sex: Female
  Weight: 48 kg

DRUGS (18)
  1. METHOTREXATE SODIUM [Suspect]
     Active Substance: METHOTREXATE SODIUM
     Indication: Morphoea
     Dosage: 25 MG, WEEKLY
     Route: 058
  2. METHOTREXATE SODIUM [Suspect]
     Active Substance: METHOTREXATE SODIUM
     Indication: Eosinophilic fasciitis
  3. PREDNISONE [Suspect]
     Active Substance: PREDNISONE
     Indication: Morphoea
     Dosage: 10 MG, DAILY
     Route: 048
  4. PREDNISONE [Suspect]
     Active Substance: PREDNISONE
     Indication: Eosinophilic fasciitis
  5. ALENDRONATE [Concomitant]
     Active Substance: ALENDRONATE SODIUM
  6. ATENOLOL [Concomitant]
     Active Substance: ATENOLOL
  7. CALCIUM CARBONATE\CHOLECALCIFEROL [Concomitant]
     Active Substance: CALCIUM CARBONATE\CHOLECALCIFEROL
  8. ELIQUIS [Concomitant]
     Active Substance: APIXABAN
  9. FOLIC ACID [Concomitant]
     Active Substance: FOLIC ACID
  10. FUROSEMIDE [Concomitant]
     Active Substance: FUROSEMIDE
  11. FUSIDIC ACID [Concomitant]
     Active Substance: FUSIDIC ACID
  12. IRON SUCROSE [Concomitant]
     Active Substance: IRON SUCROSE
     Route: 042
  13. METFORMIN [Concomitant]
     Active Substance: METFORMIN HYDROCHLORIDE
  14. METHADONE [Concomitant]
     Active Substance: METHADONE HYDROCHLORIDE
  15. PANTOPRAZOLE [Concomitant]
     Active Substance: PANTOPRAZOLE
  16. PERINDOPRIL ERBUMINE [Concomitant]
     Active Substance: PERINDOPRIL ERBUMINE
  17. SPIRONOLACTONE [Concomitant]
     Active Substance: SPIRONOLACTONE
  18. VITAMIN B12 [Concomitant]
     Active Substance: CYANOCOBALAMIN

REACTIONS (10)
  - Abulia [Recovered/Resolved]
  - Confusional state [Recovered/Resolved]
  - Immunosuppression [Recovered/Resolved]
  - JC virus infection [Recovered/Resolved]
  - Mental disorder [Recovered/Resolved]
  - Photopheresis [Recovered/Resolved]
  - Postural tremor [Recovered/Resolved]
  - Progressive multifocal leukoencephalopathy [Recovered/Resolved]
  - Off label use [Unknown]
  - Off label use [Unknown]
